FAERS Safety Report 4298520-6 (Version None)
Quarter: 2004Q1

REPORT INFORMATION
  Report Type: 
  Country: None (occurrence: None)
  Receive Date: 20040218
  Receipt Date: 20040129
  Transmission Date: 20041129
  Serious: Yes (Hospitalization)
  Sender: FDA-Public Use
  Company Number: WAES 0401USA02199

PATIENT
  Age: 68 Year
  Sex: Female
  Weight: 75 kg

DRUGS (8)
  1. ASPIRIN [Concomitant]
  2. LIPITOR [Concomitant]
     Indication: BLOOD CHOLESTEROL INCREASED
  3. CALCIUM (UNSPECIFIED) [Concomitant]
  4. ATACAND [Concomitant]
     Indication: HYPERTENSION
  5. ACIPHEX [Concomitant]
     Indication: DYSPEPSIA
  6. VIOXX [Suspect]
     Indication: OSTEOARTHRITIS
     Route: 048
     Dates: start: 20010101, end: 20040119
  7. VIOXX [Suspect]
     Route: 048
     Dates: start: 20040101
  8. VITAMINS (UNSPECIFIED) [Concomitant]

REACTIONS (1)
  - SMALL INTESTINE ULCER [None]
